FAERS Safety Report 4509286-6 (Version None)
Quarter: 2004Q4

REPORT INFORMATION
  Report Type: 
  Country: None (occurrence: None)
  Receive Date: 20041025
  Receipt Date: 20040708
  Transmission Date: 20050328
  Serious: Yes (Life-Threatening, Other)
  Sender: FDA-Public Use
  Company Number: US-JNJFOC-20040702368

PATIENT
  Age: 53 Year
  Sex: Female
  Weight: 47.1741 kg

DRUGS (10)
  1. REMICADE [Suspect]
     Indication: CROHN'S DISEASE
     Dosage: 5 MG/KG; SEE IMAGE
     Dates: start: 19981007
  2. REMICADE [Suspect]
     Indication: CROHN'S DISEASE
     Dosage: 5 MG/KG; SEE IMAGE
     Dates: start: 19990101
  3. REMICADE [Suspect]
     Indication: CROHN'S DISEASE
     Dosage: 5 MG/KG; SEE IMAGE
     Dates: start: 20011210
  4. REMICADE [Suspect]
     Indication: CROHN'S DISEASE
     Dosage: 5 MG/KG; SEE IMAGE
     Dates: start: 20040101
  5. REMICADE [Suspect]
     Indication: CROHN'S DISEASE
     Dosage: 5 MG/KG; SEE IMAGE
     Dates: start: 20040310
  6. REMICADE [Suspect]
     Indication: CROHN'S DISEASE
     Dosage: 5 MG/KG; SEE IMAGE
     Dates: start: 20040512
  7. MERCAPTOPURINE [Concomitant]
  8. PREDNISONE [Concomitant]
  9. NARCOTIC ANALGESICS (ANALGESICS) [Concomitant]
  10. OTHER CORTICOSTEROIDS (CORTICOSTEROID NOS) [Concomitant]

REACTIONS (4)
  - CENTRAL LINE INFECTION [None]
  - INFUSION RELATED REACTION [None]
  - RASH [None]
  - SMALL INTESTINAL OBSTRUCTION [None]
